FAERS Safety Report 17094948 (Version 3)
Quarter: 2020Q1

REPORT INFORMATION
  Report Type: Spontaneous
  Country: BR (occurrence: BR)
  Receive Date: 20191130
  Receipt Date: 20200205
  Transmission Date: 20200409
  Serious: Yes (Hospitalization, Other)
  Sender: FDA-Public Use
  Company Number: BR-AMGEN-BRASP2019198407

PATIENT
  Age: 40 Year
  Sex: Female

DRUGS (2)
  1. HIXIZINE [Concomitant]
     Active Substance: HYDROXYZINE HYDROCHLORIDE
     Indication: PSORIASIS
     Dosage: UNK
  2. ENBREL [Suspect]
     Active Substance: ETANERCEPT
     Indication: PSORIASIS
     Dosage: UNK
     Route: 065
     Dates: start: 2015, end: 2017

REACTIONS (8)
  - Fungal oesophagitis [Unknown]
  - Oral pain [Unknown]
  - Toothache [Unknown]
  - Peritoneal tuberculosis [Recovered/Resolved]
  - Hepatic infection fungal [Unknown]
  - Fistula [Unknown]
  - Fungal infection [Unknown]
  - Anaemia [Not Recovered/Not Resolved]

NARRATIVE: CASE EVENT DATE: 2016
